FAERS Safety Report 7406868-9 (Version None)
Quarter: 2011Q2

REPORT INFORMATION
  Report Type: 
  Country: None (occurrence: None)
  Receive Date: 20110411
  Receipt Date: 20110304
  Transmission Date: 20111010
  Serious: No
  Sender: FDA-Public Use
  Company Number: US-BAUSCH-2011BL001391

PATIENT
  Age: 66 Year
  Sex: Female

DRUGS (3)
  1. ZIRGAN [Suspect]
     Route: 047
     Dates: start: 20110302, end: 20110304
  2. ZIRGAN [Suspect]
     Indication: HERPES OPHTHALMIC
     Route: 047
     Dates: start: 20110302, end: 20110304
  3. FOSAMAX [Concomitant]

REACTIONS (3)
  - EYELID OEDEMA [None]
  - ERYTHEMA OF EYELID [None]
  - MEDICATION RESIDUE [None]
